FAERS Safety Report 24753472 (Version 1)
Quarter: 2024Q4

REPORT INFORMATION
  Report Type: Spontaneous
  Country: PT (occurrence: PT)
  Receive Date: 20241219
  Receipt Date: 20241219
  Transmission Date: 20250115
  Serious: Yes (Hospitalization)
  Sender: MYLAN
  Company Number: PT-MYLANLABS-2024M1113998

PATIENT
  Age: 72 Year
  Sex: Male

DRUGS (4)
  1. ACETAMINOPHEN [Suspect]
     Active Substance: ACETAMINOPHEN
     Indication: Fracture pain
     Dosage: 1 GRAM, DOSE: 1G 6/6H
     Route: 042
  2. TRAMADOL [Suspect]
     Active Substance: TRAMADOL
     Indication: Fracture pain
     Dosage: 100 MILLIGRAM (DOSE: 100MG 8/8H)
     Route: 042
  3. METAMIZOL [Suspect]
     Active Substance: METAMIZOLE SODIUM
     Indication: Fracture pain
     Dosage: 1 GRAM, DOSE: 1G 8/8H
     Route: 042
  4. MORPHINE [Suspect]
     Active Substance: MORPHINE
     Indication: Fracture pain
     Dosage: UNK, PRN (AS NEEDED)
     Route: 042

REACTIONS (1)
  - Drug ineffective [Unknown]
